FAERS Safety Report 7497156-3 (Version None)
Quarter: 2011Q2

REPORT INFORMATION
  Report Type: 
  Country: None (occurrence: None)
  Receive Date: 20110523
  Receipt Date: 20110513
  Transmission Date: 20111010
  Serious: Yes (Other)
  Sender: FDA-Public Use
  Company Number: US-SANOFI-AVENTIS-2011SA030428

PATIENT
  Age: 54 Year
  Sex: Female

DRUGS (3)
  1. SOLOSTAR [Suspect]
     Indication: DIABETES MELLITUS
     Dates: start: 20090101
  2. APIDRA [Suspect]
     Indication: DIABETES MELLITUS
     Dosage: AT LEAST 3 TIMES A DAY ON A SLIDING SCALE
     Route: 058
     Dates: start: 20090101
  3. LEVEMIR [Concomitant]

REACTIONS (4)
  - DIABETES MELLITUS INADEQUATE CONTROL [None]
  - HYPOGLYCAEMIA [None]
  - HYPERGLYCAEMIA [None]
  - DEVICE MALFUNCTION [None]
